FAERS Safety Report 8320547-5 (Version None)
Quarter: 2012Q2

REPORT INFORMATION
  Report Type: 
  Country: None (occurrence: None)
  Receive Date: 20120430
  Receipt Date: 20120424
  Transmission Date: 20120825
  Serious: Yes (Other)
  Sender: FDA-Public Use
  Company Number: US-PFIZER INC-2012102338

PATIENT
  Sex: Female

DRUGS (2)
  1. ARTIFICIAL TEARS [Concomitant]
     Dosage: UNK
  2. XALATAN [Suspect]
     Dosage: 1 DROP IN BOTH EYES AT BEDTIME (Q HS)

REACTIONS (1)
  - CEREBROVASCULAR ACCIDENT [None]
